FAERS Safety Report 20211852 (Version 1)
Quarter: 2021Q4

REPORT INFORMATION
  Report Type: Other
  Country: US (occurrence: US)
  Receive Date: 20211221
  Receipt Date: 20211221
  Transmission Date: 20220303
  Serious: No
  Sender: FDA-Public Use
  Company Number: US-ACORDA-ACO_170591_2021

PATIENT
  Sex: Female

DRUGS (3)
  1. INBRIJA [Suspect]
     Active Substance: LEVODOPA
     Indication: Parkinson^s disease
     Dosage: 84 MILLIGRAM, AS NEEDED
     Dates: start: 202109
  2. INBRIJA [Suspect]
     Active Substance: LEVODOPA
     Indication: On and off phenomenon
  3. CARBIDOPA\LEVODOPA [Concomitant]
     Active Substance: CARBIDOPA\LEVODOPA
     Indication: Product used for unknown indication
     Dosage: UNK
     Route: 048

REACTIONS (7)
  - Therapeutic product effect incomplete [Unknown]
  - Throat irritation [Unknown]
  - Sinusitis [Recovered/Resolved]
  - Product colour issue [Unknown]
  - Product cleaning inadequate [Unknown]
  - Choking [Not Recovered/Not Resolved]
  - Sputum discoloured [Not Recovered/Not Resolved]
